FAERS Safety Report 6135817-9 (Version None)
Quarter: 2009Q1

REPORT INFORMATION
  Report Type: 
  Country: None (occurrence: None)
  Receive Date: 20090327
  Receipt Date: 20090319
  Transmission Date: 20090719
  Serious: Yes (Hospitalization)
  Sender: FDA-Public Use
  Company Number: FR-B.I. PHARMACEUTICALS,INC./RIDGEFIELD-2009-FF-00217FF

PATIENT
  Age: 82 Year
  Sex: Female

DRUGS (6)
  1. MECIR LP 0.4 [Suspect]
     Route: 048
     Dates: start: 20090225, end: 20090303
  2. ATHYMIL [Suspect]
     Dosage: 20MG
     Dates: start: 20090212
  3. ATHYMIL [Suspect]
     Dosage: 40MG
     Dates: end: 20090303
  4. LEVEMIR [Concomitant]
     Dosage: 10U
     Dates: start: 20090126, end: 20090303
  5. DIFFU K [Concomitant]
     Dates: end: 20090303
  6. DEDROGYL [Concomitant]
     Indication: URINARY RETENTION
     Dates: start: 20090206

REACTIONS (1)
  - AGRANULOCYTOSIS [None]
